FAERS Safety Report 23016228 (Version 2)
Quarter: 2023Q4

REPORT INFORMATION
  Report Type: Spontaneous
  Country: JP (occurrence: JP)
  Receive Date: 20231002
  Receipt Date: 20231017
  Transmission Date: 20240110
  Serious: No
  Sender: FDA-Public Use
  Company Number: JP-GSKNCCC-Case-01819292_AE-75614

PATIENT

DRUGS (1)
  1. FLUTICASONE PROPIONATE [Suspect]
     Active Substance: FLUTICASONE PROPIONATE
     Indication: Asthma
     Dosage: UNK, BID, 2 INHALATIONS IN THE MORNING, 2 INHALATIONS IN THE EVENING

REACTIONS (1)
  - Prescribed overdose [Unknown]
